FAERS Safety Report 10647632 (Version 9)
Quarter: 2016Q4

REPORT INFORMATION
  Report Type: Report from Study
  Country: IT (occurrence: IT)
  Receive Date: 20141211
  Receipt Date: 20161104
  Transmission Date: 20170206
  Serious: Yes (Hospitalization, Other)
  Sender: FDA-Public Use
  Company Number: PHHO2014IT016219

PATIENT
  Age: 70 Year
  Sex: Female
  Weight: 90.9 kg

DRUGS (8)
  1. ACZ885 [Suspect]
     Active Substance: CANAKINUMAB
     Indication: CARDIOVASCULAR EVENT PROPHYLAXIS
     Dosage: 150 MG, UNK
     Route: 058
     Dates: start: 20130604, end: 20140902
  2. ISOSORBIDE MONONITRATE. [Concomitant]
     Active Substance: ISOSORBIDE MONONITRATE
     Indication: MYOCARDIAL INFARCTION
     Dosage: 40 MG, BID
     Route: 048
  3. CANDESARTAN [Concomitant]
     Active Substance: CANDESARTAN
     Indication: HYPERTENSION
     Dosage: 32 MG, QD
     Route: 048
  4. INSULIN ASPART [Concomitant]
     Active Substance: INSULIN ASPART
     Indication: DIABETES MELLITUS
     Dosage: 15 U+ 15U+ 24U
     Route: 058
     Dates: start: 200703
  5. ACETYLSALICYLIC ACID [Concomitant]
     Active Substance: ASPIRIN
     Indication: CARDIOVASCULAR EVENT PROPHYLAXIS
     Dosage: 160 MG, QD
     Route: 048
     Dates: start: 200703
  6. NEBIVOLOL. [Concomitant]
     Active Substance: NEBIVOLOL
     Indication: MYOCARDIAL INFARCTION
     Dosage: 5 MG, QD
     Route: 048
  7. RAMIPRIL. [Concomitant]
     Active Substance: RAMIPRIL
     Indication: HYPERTENSION
     Dosage: 2.5 MG, QD
     Route: 048
     Dates: start: 20131211
  8. INSULIN DETEMIR [Concomitant]
     Active Substance: INSULIN DETEMIR
     Indication: DIABETES MELLITUS
     Dosage: 48 U, QD
     Route: 058
     Dates: start: 200703

REACTIONS (1)
  - Liver abscess [Recovering/Resolving]

NARRATIVE: CASE EVENT DATE: 20141119
